FAERS Safety Report 4549951-8 (Version None)
Quarter: 2005Q1

REPORT INFORMATION
  Report Type: 
  Country: None (occurrence: None)
  Receive Date: 20050112
  Receipt Date: 20041207
  Transmission Date: 20050727
  Serious: Yes (Hospitalization, Other)
  Sender: FDA-Public Use
  Company Number: PHBS2004JP16526

PATIENT
  Age: 81 Year
  Sex: Female
  Weight: 45 kg

DRUGS (1)
  1. VOLTAREN [Suspect]
     Indication: PAIN
     Dosage: 50 MG, ONCE/SINGLE
     Route: 054
     Dates: start: 20040517, end: 20040517

REACTIONS (6)
  - ANAPHYLACTIC REACTION [None]
  - CHEST DISCOMFORT [None]
  - GENERALISED ERYTHEMA [None]
  - HYPOTENSION [None]
  - OXYGEN SATURATION DECREASED [None]
  - PRURITUS [None]
